FAERS Safety Report 8677595 (Version 2)
Quarter: 2012Q4

REPORT INFORMATION
  Report Type: 
  Country: IN (occurrence: IN)
  Receive Date: 20120723
  Receipt Date: 20121226
  Transmission Date: 20130627
  Serious: Yes (Hospitalization)
  Sender: FDA-Public Use
  Company Number: IN-PFIZER INC-2012174108

PATIENT
  Age: 54 Year
  Sex: Male

DRUGS (2)
  1. SUTENT [Suspect]
     Indication: METASTATIC RENAL CELL CARCINOMA
     Dosage: 50 mg, 1x/day
     Route: 048
     Dates: start: 20120629, end: 20120710
  2. SUTENT [Suspect]
     Dosage: 50 mg, 1x/day
     Route: 048
     Dates: end: 201211

REACTIONS (3)
  - Lower limb fracture [Recovering/Resolving]
  - Disease progression [Unknown]
  - Metastatic renal cell carcinoma [Unknown]
